FAERS Safety Report 20461747 (Version 1)
Quarter: 2022Q1

REPORT INFORMATION
  Report Type: Spontaneous
  Country: US (occurrence: None)
  Receive Date: 20220211
  Receipt Date: 20220211
  Transmission Date: 20220423
  Serious: Yes (Hospitalization)
  Sender: FDA-Public Use
  Company Number: None

PATIENT
  Age: 37 Year
  Sex: Female

DRUGS (3)
  1. TOBRAMYCIN [Suspect]
     Active Substance: TOBRAMYCIN
  2. ADVAIR DISKU AER [Concomitant]
  3. SPIRIVA HANDIHALER [Concomitant]

REACTIONS (2)
  - Bronchiectasis [None]
  - Pseudomonas infection [None]

NARRATIVE: CASE EVENT DATE: 20220201
